FAERS Safety Report 19089087 (Version 1)
Quarter: 2021Q2

REPORT INFORMATION
  Report Type: Report from Study
  Country: KE (occurrence: KE)
  Receive Date: 20210403
  Receipt Date: 20210403
  Transmission Date: 20210717
  Serious: Yes (Death, Hospitalization, Other)
  Sender: FDA-Public Use
  Company Number: KE-CIPLA LTD.-2021KE02452

PATIENT

DRUGS (6)
  1. LOPINAVIR/RITONAVIR [Suspect]
     Active Substance: LOPINAVIR\RITONAVIR
     Dosage: 3 DOSAGE FORM, BID (120MG/30MG)
     Route: 048
     Dates: start: 20170705, end: 20171225
  2. ABACAVIR/LAMIVUDINE [Suspect]
     Active Substance: ABACAVIR\LAMIVUDINE
     Indication: HIV INFECTION WHO CLINICAL STAGE II
     Dosage: 1.5 DOSAGE FORM, BID (60MG/30MG BID)
     Route: 048
     Dates: start: 20170621, end: 20170629
  3. ABACAVIR/LAMIVUDINE [Suspect]
     Active Substance: ABACAVIR\LAMIVUDINE
     Dosage: 1.5 DOSAGE FORM, BID (60MG/30MG BID)
     Route: 048
     Dates: start: 20170705, end: 20171225
  4. BACTRIM [Concomitant]
     Active Substance: SULFAMETHOXAZOLE\TRIMETHOPRIM
     Indication: PROPHYLAXIS
     Dosage: UNK
     Route: 065
  5. SEPTRIN [Concomitant]
     Active Substance: SULFAMETHOXAZOLE\TRIMETHOPRIM
     Indication: HIV INFECTION WHO CLINICAL STAGE II
     Dosage: 240 MILLIGRAM, QD
     Route: 065
     Dates: start: 20170421
  6. LOPINAVIR/RITONAVIR [Suspect]
     Active Substance: LOPINAVIR\RITONAVIR
     Indication: HIV INFECTION WHO CLINICAL STAGE II
     Dosage: 3 DOSAGE FORM, BID (120MG/30MG)
     Route: 048
     Dates: start: 20170621, end: 20170629

REACTIONS (4)
  - Cardio-respiratory arrest [None]
  - Pneumocystis jirovecii pneumonia [Recovered/Resolved]
  - Urinary tract infection [Recovered/Resolved]
  - Acarodermatitis [Recovered/Resolved]

NARRATIVE: CASE EVENT DATE: 20170629
